FAERS Safety Report 20976250 (Version 2)
Quarter: 2022Q3

REPORT INFORMATION
  Report Type: Spontaneous
  Country: SE (occurrence: SE)
  Receive Date: 20220617
  Receipt Date: 20220707
  Transmission Date: 20221026
  Serious: Yes (Other)
  Sender: FDA-Public Use
  Company Number: SE-PFIZER INC-202200839194

PATIENT
  Age: 82 Year
  Sex: Female

DRUGS (1)
  1. VIZIMPRO [Suspect]
     Active Substance: DACOMITINIB
     Indication: Lung neoplasm malignant
     Dosage: UNK

REACTIONS (4)
  - Staphylococcal infection [Unknown]
  - Streptococcal infection [Unknown]
  - Brain operation [Unknown]
  - Blood disorder [Unknown]
